FAERS Safety Report 24309641 (Version 1)
Quarter: 2024Q3

REPORT INFORMATION
  Report Type: Spontaneous
  Country: GB (occurrence: GB)
  Receive Date: 20240912
  Receipt Date: 20240912
  Transmission Date: 20241016
  Serious: Yes (Disabling, Other)
  Sender: NOVO NORDISK
  Company Number: None

PATIENT
  Age: 65 Year
  Sex: Female
  Weight: 87 kg

DRUGS (1)
  1. WEGOVY [Suspect]
     Active Substance: SEMAGLUTIDE
     Indication: Product used for unknown indication
     Dosage: 1 MG, QW
     Dates: start: 20240201, end: 20240801

REACTIONS (17)
  - Hepatic pain [Recovering/Resolving]
  - Lymph node pain [Not Recovered/Not Resolved]
  - Sweating fever [Recovering/Resolving]
  - Costochondritis [Recovering/Resolving]
  - Temporomandibular pain and dysfunction syndrome [Recovered/Resolved]
  - Hiccups [Recovered/Resolved]
  - Chromaturia [Recovered/Resolved]
  - Impaired gastric emptying [Recovering/Resolving]
  - Pancreatitis [Recovering/Resolving]
  - Abdominal pain [Recovering/Resolving]
  - Diarrhoea [Recovered/Resolved]
  - Vomiting [Recovered/Resolved]
  - Alopecia [Not Recovered/Not Resolved]
  - Abdominal distension [Recovering/Resolving]
  - Reflux gastritis [Recovered/Resolved]
  - Headache [Recovering/Resolving]
  - Dizziness [Recovered/Resolved]

NARRATIVE: CASE EVENT DATE: 20240701
